FAERS Safety Report 6192476-7 (Version None)
Quarter: 2009Q2

REPORT INFORMATION
  Report Type: 
  Country: None (occurrence: None)
  Receive Date: 20090518
  Receipt Date: 20090506
  Transmission Date: 20091009
  Serious: Yes (Hospitalization)
  Sender: FDA-Public Use
  Company Number: DE-BAYER-200920249GPV

PATIENT
  Age: 89 Year
  Sex: Female
  Weight: 58 kg

DRUGS (17)
  1. CIPROBAY [Suspect]
     Indication: DIVERTICULITIS
     Dosage: UNIT DOSE: 250 MG
     Route: 048
     Dates: start: 20090220, end: 20090304
  2. HYDROCHLOROTHIAZIDE [Suspect]
     Indication: HYPERTENSION
     Dosage: UNIT DOSE: 12.5 MG
     Route: 048
     Dates: start: 20090220, end: 20090325
  3. ROCEPHIN [Suspect]
     Indication: DIVERTICULITIS
     Dosage: UNIT DOSE: 1000 MG
     Route: 042
     Dates: start: 20090220, end: 20090304
  4. ZINNAT [Suspect]
     Indication: DIVERTICULITIS
     Dosage: UNIT DOSE: 250 MG
     Route: 048
     Dates: start: 20090304, end: 20090314
  5. TORSEMIDE [Concomitant]
     Indication: HYPERTENSION
     Route: 065
  6. AMLODIPINE [Concomitant]
     Indication: HYPERTENSION
     Dosage: UNIT DOSE: 10 MG
     Route: 048
     Dates: start: 20090220
  7. ASPIRIN [Concomitant]
     Indication: CARDIOVASCULAR EVENT PROPHYLAXIS
     Dosage: UNIT DOSE: 100 MG
     Route: 048
     Dates: start: 20090225
  8. FOLSAN [Concomitant]
     Indication: ANAEMIA
     Dosage: UNIT DOSE: 5 MG
     Route: 048
     Dates: start: 20090304
  9. METOCLOPRAMIDE [Concomitant]
     Indication: DYSPEPSIA
     Dosage: UNIT DOSE: 2.5 MG
     Route: 048
     Dates: start: 20090217, end: 20090320
  10. EMBOLEX [Concomitant]
     Indication: TRANSIENT ISCHAEMIC ATTACK
     Dosage: UNIT DOSE: 0.5 MG
     Route: 058
     Dates: start: 20090201
  11. PANTOZOL [Concomitant]
     Indication: PROPHYLAXIS AGAINST GASTROINTESTINAL ULCER
     Dosage: UNIT DOSE: 40 MG
     Route: 048
     Dates: start: 20090217
  12. PEROCUR [Concomitant]
     Indication: DIARRHOEA
     Dosage: UNIT DOSE: 1 DF
     Route: 048
     Dates: start: 20090315, end: 20090320
  13. RAMIPRIL [Concomitant]
     Indication: HYPERTENSION
     Dosage: UNIT DOSE: 2.5 MG
     Route: 048
     Dates: start: 20090217
  14. VITAMIN B DUO [Concomitant]
     Indication: HYPOVITAMINOSIS
     Dosage: UNIT DOSE: 1 DF
     Route: 048
     Dates: start: 20090304
  15. METRONIDAZOLE HCL [Concomitant]
     Indication: DIARRHOEA
     Route: 065
     Dates: start: 20090321
  16. FLUID REPLACEMENT [Concomitant]
     Indication: DIARRHOEA
     Route: 065
     Dates: start: 20090321
  17. REMERGIL [Concomitant]
     Indication: DEMENTIA
     Route: 065
     Dates: start: 20090326

REACTIONS (6)
  - ASTHENIA [None]
  - BLOOD CREATININE INCREASED [None]
  - DEHYDRATION [None]
  - DIARRHOEA [None]
  - GASTROENTERITIS CLOSTRIDIAL [None]
  - HYPOKALAEMIA [None]
